FAERS Safety Report 11511033 (Version 1)
Quarter: 2015Q3

REPORT INFORMATION
  Report Type: Report from Study
  Country: CO (occurrence: CO)
  Receive Date: 20150915
  Receipt Date: 20150915
  Transmission Date: 20151125
  Serious: Yes (Death, Other)
  Sender: FDA-Public Use
  Company Number: CO-REGENERON PHARMACEUTICALS, INC.-2015-12360

PATIENT

DRUGS (4)
  1. EYLEA [Suspect]
     Active Substance: AFLIBERCEPT
     Indication: AGE-RELATED MACULAR DEGENERATION
     Dosage: 2 MG, Q2MON
     Route: 031
     Dates: start: 20140725, end: 20140725
  2. LOSARTAN. [Concomitant]
     Active Substance: LOSARTAN
  3. EYLEA [Suspect]
     Active Substance: AFLIBERCEPT
     Dosage: 2 MG, Q2MON
     Route: 031
     Dates: start: 20141105, end: 20141105
  4. EYLEA [Suspect]
     Active Substance: AFLIBERCEPT
     Dosage: 2 MG, Q2MON
     Route: 031
     Dates: start: 20140823, end: 20140823

REACTIONS (4)
  - Blood pressure increased [Unknown]
  - Product use issue [Unknown]
  - Procedural complication [Fatal]
  - Inguinal hernia [Fatal]

NARRATIVE: CASE EVENT DATE: 20150127
